FAERS Safety Report 14009741 (Version 7)
Quarter: 2018Q4

REPORT INFORMATION
  Report Type: Spontaneous
  Country: DE (occurrence: DE)
  Receive Date: 20170925
  Receipt Date: 20181228
  Transmission Date: 20190204
  Serious: Yes (Other)
  Sender: FDA-Public Use
  Company Number: PHHY2017DE139273

PATIENT
  Age: 6 Year
  Sex: Male
  Weight: 20.4 kg

DRUGS (13)
  1. ILARIS [Interacting]
     Active Substance: CANAKINUMAB
     Indication: ARTHRALGIA
  2. OMEPRAZOLE. [Concomitant]
     Active Substance: OMEPRAZOLE
     Indication: PRODUCT USED FOR UNKNOWN INDICATION
     Dosage: 10 MG, QD
     Route: 048
     Dates: start: 201411
  3. COLCHICINUM [Concomitant]
     Indication: RHEUMATIC DISORDER
     Dosage: 0.5 MG, BID
     Route: 048
     Dates: start: 20150717
  4. LASIX [Interacting]
     Active Substance: FUROSEMIDE
     Indication: IDIOPATHIC INTRACRANIAL HYPERTENSION
     Dosage: 2 MG, TID
     Route: 048
  5. IBUPROFEN. [Concomitant]
     Active Substance: IBUPROFEN
     Indication: RHEUMATIC DISORDER
     Dosage: 200 MG, BID
     Route: 048
  6. LASIX [Interacting]
     Active Substance: FUROSEMIDE
     Indication: INTRACRANIAL PRESSURE INCREASED
     Dosage: 4 MG, TID
     Route: 048
  7. ILARIS [Interacting]
     Active Substance: CANAKINUMAB
     Indication: FAMILIAL MEDITERRANEAN FEVER
     Dosage: UNK
     Route: 058
  8. LASIX [Interacting]
     Active Substance: FUROSEMIDE
     Dosage: 8 MG, TID
     Route: 048
  9. BICANORM [Concomitant]
     Active Substance: SODIUM BICARBONATE
     Dosage: 8 G, QD
     Route: 065
     Dates: start: 20170814, end: 20170821
  10. DIAMOX SODIUM [Interacting]
     Active Substance: ACETAZOLAMIDE SODIUM
     Indication: IDIOPATHIC INTRACRANIAL HYPERTENSION
     Dosage: 625 MG (250-125-250 MG), QD
     Route: 065
     Dates: start: 20170711, end: 20170821
  11. ILARIS [Suspect]
     Active Substance: CANAKINUMAB
     Indication: FAMILIAL MEDITERRANEAN FEVER
     Dosage: 4 MG/KG, QMO
     Route: 058
     Dates: start: 20170216
  12. BICANORM [Concomitant]
     Active Substance: SODIUM BICARBONATE
     Indication: PRODUCT USED FOR UNKNOWN INDICATION
     Dosage: 1 G, BID
     Route: 065
     Dates: start: 20170714, end: 20170807
  13. BICANORM [Concomitant]
     Active Substance: SODIUM BICARBONATE
     Dosage: 6 G, QD
     Route: 065
     Dates: start: 20170808, end: 20170813

REACTIONS (5)
  - Intracranial pressure increased [Not Recovered/Not Resolved]
  - Idiopathic intracranial hypertension [Not Recovered/Not Resolved]
  - Familial mediterranean fever [Recovered/Resolved]
  - Drug interaction [Recovered/Resolved]
  - Vitamin D deficiency [Unknown]

NARRATIVE: CASE EVENT DATE: 20170711
